FAERS Safety Report 24152156 (Version 1)
Quarter: 2024Q3

REPORT INFORMATION
  Report Type: Spontaneous
  Country: JP (occurrence: JP)
  Receive Date: 20240730
  Receipt Date: 20240730
  Transmission Date: 20241017
  Serious: No
  Sender: JAZZ
  Company Number: JP-JAZZ PHARMACEUTICALS-2024-JP-011130

PATIENT
  Age: 16 Year

DRUGS (2)
  1. DEFITELIO [Suspect]
     Active Substance: DEFIBROTIDE SODIUM
     Indication: Venoocclusive liver disease
     Dosage: UNK
     Route: 042
     Dates: start: 20240503, end: 202405
  2. DEFITELIO [Suspect]
     Active Substance: DEFIBROTIDE SODIUM
     Dosage: UNK
     Route: 042
     Dates: start: 202405

REACTIONS (1)
  - Cystitis haemorrhagic [Not Recovered/Not Resolved]

NARRATIVE: CASE EVENT DATE: 20240510
